FAERS Safety Report 9467781 (Version 1)
Quarter: 2013Q3

REPORT INFORMATION
  Report Type: Spontaneous
  Country: FR (occurrence: FR)
  Receive Date: 20130821
  Receipt Date: 20130821
  Transmission Date: 20140515
  Serious: Yes (Hospitalization)
  Sender: FDA-Public Use
  Company Number: FR-JNJFOC-20130808537

PATIENT
  Age: 76 Year
  Sex: Male

DRUGS (3)
  1. IXPRIM [Suspect]
     Indication: SCIATICA
     Route: 048
     Dates: start: 201212, end: 201212
  2. LYRICA [Suspect]
     Indication: SCIATICA
     Route: 048
     Dates: start: 201212, end: 201212
  3. TETRAZEPAM [Suspect]
     Indication: SCIATICA
     Route: 048
     Dates: start: 201212, end: 201212

REACTIONS (3)
  - Confusional state [Recovered/Resolved]
  - Renal failure acute [Recovered/Resolved]
  - Urinary tract disorder [Recovered/Resolved]
